FAERS Safety Report 6081523-9 (Version None)
Quarter: 2009Q1

REPORT INFORMATION
  Report Type: 
  Country: None (occurrence: None)
  Receive Date: 20090218
  Receipt Date: 20090204
  Transmission Date: 20090719
  Serious: Yes (Hospitalization)
  Sender: FDA-Public Use
  Company Number: GB-PFIZER INC-2009165699

PATIENT

DRUGS (16)
  1. VIBRAMYCIN [Suspect]
     Indication: EAR PAIN
     Dates: start: 20081027, end: 20081028
  2. ADCAL-D3 [Concomitant]
  3. BETAHISTINE [Concomitant]
  4. BISOPROLOL [Concomitant]
  5. FOLIC ACID [Concomitant]
  6. FUROSEMIDE [Concomitant]
  7. GLICLAZIDE [Concomitant]
  8. GLYCERYL TRINITRATE [Concomitant]
  9. LANSOPRAZOLE [Concomitant]
  10. LOSARTAN POTASSIUM [Concomitant]
  11. MEBEVERINE HYDROCHLORIDE [Concomitant]
  12. METFORMIN HYDROCHLORIDE [Concomitant]
  13. METHOTREXATE SODIUM [Concomitant]
  14. PREDNISOLONE [Concomitant]
  15. PROCHLORPERAZINE [Concomitant]
  16. TRAMADOL HYDROCHLORIDE [Concomitant]

REACTIONS (2)
  - ANGINA PECTORIS [None]
  - DYSPEPSIA [None]
